FAERS Safety Report 19849672 (Version 5)
Quarter: 2022Q3

REPORT INFORMATION
  Report Type: Report from Study
  Country: CN (occurrence: CN)
  Receive Date: 20210917
  Receipt Date: 20220919
  Transmission Date: 20221026
  Serious: Yes (Hospitalization, Other)
  Sender: FDA-Public Use
  Company Number: CN-GILEAD-2021-0548831

PATIENT
  Age: 52 Year
  Sex: Female
  Weight: 82 kg

DRUGS (58)
  1. SACITUZUMAB GOVITECAN [Suspect]
     Active Substance: SACITUZUMAB GOVITECAN
     Indication: Hormone receptor positive HER2 negative breast cancer
     Dosage: 810 MG
     Route: 042
     Dates: start: 20210825
  2. SACITUZUMAB GOVITECAN [Suspect]
     Active Substance: SACITUZUMAB GOVITECAN
     Dosage: 810 MG
     Route: 042
     Dates: start: 20210901, end: 20210909
  3. SACITUZUMAB GOVITECAN [Suspect]
     Active Substance: SACITUZUMAB GOVITECAN
     Dosage: 7.5 MG/KG
     Route: 042
     Dates: start: 20210923
  4. HERBALS\DIAMMONIUM GLYCYRRHIZINATE [Concomitant]
     Active Substance: HERBALS\DIAMMONIUM GLYCYRRHIZINATE
     Indication: Alanine aminotransferase increased
     Dosage: 50 MG, ONE TIME DOSE
     Route: 048
     Dates: start: 20210806
  5. HERBALS\DIAMMONIUM GLYCYRRHIZINATE [Concomitant]
     Active Substance: HERBALS\DIAMMONIUM GLYCYRRHIZINATE
     Indication: Aspartate aminotransferase increased
  6. HERBALS\DIAMMONIUM GLYCYRRHIZINATE [Concomitant]
     Active Substance: HERBALS\DIAMMONIUM GLYCYRRHIZINATE
     Indication: Gamma-glutamyltransferase increased
  7. PHOSPHOLIPID [Concomitant]
     Active Substance: PHOSPHOLIPID
     Indication: Alanine aminotransferase increased
     Dosage: 50 MG ONCE
     Route: 048
     Dates: start: 20210806
  8. PHOSPHOLIPID [Concomitant]
     Active Substance: PHOSPHOLIPID
     Indication: Aspartate aminotransferase increased
     Dosage: 20 MG, QD
     Route: 042
     Dates: start: 20210828, end: 20210830
  9. PHOSPHOLIPID [Concomitant]
     Active Substance: PHOSPHOLIPID
     Indication: Gamma-glutamyltransferase increased
  10. LEUCOGEN [Concomitant]
     Active Substance: LEUCOGEN
     Indication: White blood cell count increased
     Dosage: 40 MG, TID
     Route: 048
     Dates: start: 20210806
  11. LEUCOGEN [Concomitant]
     Active Substance: LEUCOGEN
     Indication: Leukopenia
  12. OXYCODONE HYDROCHLORIDE [Concomitant]
     Active Substance: OXYCODONE HYDROCHLORIDE
     Indication: Pain
     Dosage: 10 MG, Q12H
     Route: 048
     Dates: start: 20210825, end: 20210901
  13. IBANDRONIC ACID [Concomitant]
     Active Substance: IBANDRONIC ACID
     Indication: Metastases to bone
     Dosage: 6 ML, QD
     Route: 042
     Dates: start: 20210825, end: 20210827
  14. COMPOUND PARACETAMOL [Concomitant]
     Indication: Prophylaxis
     Dosage: 1 DF, ONE TIME DOSE
     Route: 048
     Dates: start: 20210825, end: 20210825
  15. COMPOUND PARACETAMOL [Concomitant]
     Dosage: 1 DF, ONE TIME DOSE
     Route: 048
     Dates: start: 20210901, end: 20210901
  16. CIMETIDINE [Concomitant]
     Active Substance: CIMETIDINE
     Indication: Prophylaxis
     Dosage: 0.4 G, ONE TIME DOSE
     Route: 042
     Dates: start: 20210825, end: 20210825
  17. PROMETHAZINE HYDROCHLORIDE [Concomitant]
     Active Substance: PROMETHAZINE HYDROCHLORIDE
     Indication: Prophylaxis
     Dosage: 25 MG, ONE TIME DOSE
     Route: 030
     Dates: start: 20210825, end: 20210825
  18. PROMETHAZINE HYDROCHLORIDE [Concomitant]
     Active Substance: PROMETHAZINE HYDROCHLORIDE
     Indication: Vomiting
     Dosage: 25 MG, ONE TIME DOSE
     Route: 030
     Dates: start: 20210830, end: 20210830
  19. PROMETHAZINE HYDROCHLORIDE [Concomitant]
     Active Substance: PROMETHAZINE HYDROCHLORIDE
     Dosage: 25 MG, ONE TIME DOSE
     Route: 030
     Dates: start: 20210901, end: 20210901
  20. PROMETHAZINE HYDROCHLORIDE [Concomitant]
     Active Substance: PROMETHAZINE HYDROCHLORIDE
     Dosage: 25 MG, QD
     Route: 042
     Dates: start: 20210909, end: 20210909
  21. TROPISETRON HYDROCHLORIDE [Concomitant]
     Active Substance: TROPISETRON HYDROCHLORIDE
     Indication: Prophylaxis of nausea and vomiting
     Dosage: 5 MG, QD
     Route: 042
     Dates: start: 20210825, end: 20210827
  22. TROPISETRON HYDROCHLORIDE [Concomitant]
     Active Substance: TROPISETRON HYDROCHLORIDE
     Dosage: 25 MG, QD
     Route: 042
     Dates: start: 20210831, end: 20210901
  23. FOSAPREPITANT DIMEGLUMINE [Concomitant]
     Active Substance: FOSAPREPITANT DIMEGLUMINE
     Indication: Prophylaxis of nausea and vomiting
     Dosage: 0.15 G, QD
     Route: 042
     Dates: start: 20210825, end: 20210825
  24. FOSAPREPITANT DIMEGLUMINE [Concomitant]
     Active Substance: FOSAPREPITANT DIMEGLUMINE
     Dosage: 0.15 G, QD
     Route: 042
     Dates: start: 20210825, end: 20210825
  25. DEXAMETHASONE SODIUM PHOSPHATE [Concomitant]
     Active Substance: DEXAMETHASONE SODIUM PHOSPHATE
     Indication: Prophylaxis of nausea and vomiting
     Dosage: 10 MG, QD
     Route: 042
     Dates: start: 20210825, end: 20210825
  26. PANTOPRAZOLE SODIUM [Concomitant]
     Active Substance: PANTOPRAZOLE SODIUM
     Indication: Gastrointestinal disorder prophylaxis
     Dosage: 40 MG, QD
     Route: 042
     Dates: start: 20210825, end: 20210827
  27. PANTOPRAZOLE SODIUM [Concomitant]
     Active Substance: PANTOPRAZOLE SODIUM
     Dosage: 40 MG, QD
     Route: 048
     Dates: start: 20210901
  28. PANTOPRAZOLE SODIUM [Concomitant]
     Active Substance: PANTOPRAZOLE SODIUM
     Dosage: 40 MG, QD
     Route: 042
     Dates: start: 20210907, end: 20210914
  29. MAGNESIUM ISOGLYCYRRHIZINATE [Concomitant]
     Active Substance: MAGNESIUM ISOGLYCYRRHIZINATE
     Indication: Alanine aminotransferase increased
     Dosage: 150 MG, QD
     Route: 042
     Dates: start: 20210826, end: 20210830
  30. MAGNESIUM ISOGLYCYRRHIZINATE [Concomitant]
     Active Substance: MAGNESIUM ISOGLYCYRRHIZINATE
     Indication: Aspartate aminotransferase increased
     Dosage: 150 ML, QD
     Route: 042
     Dates: start: 20210907, end: 20210909
  31. MAGNESIUM ISOGLYCYRRHIZINATE [Concomitant]
     Active Substance: MAGNESIUM ISOGLYCYRRHIZINATE
     Indication: Gamma-glutamyltransferase increased
     Dosage: UNK
  32. MAGNESIUM ISOGLYCYRRHIZINATE [Concomitant]
     Active Substance: MAGNESIUM ISOGLYCYRRHIZINATE
     Dosage: UNK
  33. MAGNESIUM ISOGLYCYRRHIZINATE [Concomitant]
     Active Substance: MAGNESIUM ISOGLYCYRRHIZINATE
     Dosage: UNK
  34. MAGNESIUM ISOGLYCYRRHIZINATE [Concomitant]
     Active Substance: MAGNESIUM ISOGLYCYRRHIZINATE
     Dosage: UNK
  35. ACETYLCYSTEINE [Concomitant]
     Active Substance: ACETYLCYSTEINE
     Indication: Alanine aminotransferase increased
     Dosage: 4 G, QD
     Route: 042
     Dates: start: 20210907, end: 20210908
  36. ACETYLCYSTEINE [Concomitant]
     Active Substance: ACETYLCYSTEINE
     Indication: Aspartate aminotransferase increased
     Dosage: 4 G, QD
     Route: 042
     Dates: start: 20210826, end: 20210830
  37. ACETYLCYSTEINE [Concomitant]
     Active Substance: ACETYLCYSTEINE
     Indication: Gamma-glutamyltransferase increased
  38. SUCRALFATE [Concomitant]
     Active Substance: SUCRALFATE
     Indication: Gastrointestinal disorder prophylaxis
     Dosage: 5 ML, TID
     Route: 048
     Dates: start: 20210831, end: 20211009
  39. FUROSEMIDE [Concomitant]
     Active Substance: FUROSEMIDE
     Indication: Oedema
     Dosage: 20 MG, QD
     Route: 042
     Dates: start: 20210827, end: 20210902
  40. FUROSEMIDE [Concomitant]
     Active Substance: FUROSEMIDE
     Dosage: 20 MG, ONE TIME DOSE
     Route: 042
     Dates: start: 20210909, end: 20210909
  41. LACTULOSE [Concomitant]
     Active Substance: LACTULOSE
     Indication: Constipation
     Dosage: UNK
     Dates: start: 20210827
  42. PALONOSETRON HYDROCHLORIDE [Concomitant]
     Active Substance: PALONOSETRON HYDROCHLORIDE
     Indication: Prophylaxis of nausea and vomiting
     Dosage: 0.25 MG, QD
     Route: 042
     Dates: start: 20210901, end: 20210901
  43. COMPOUND EOSINOPHIL LACTOBACILLUS [Concomitant]
     Indication: Diarrhoea
     Dosage: 1 G, TID
     Route: 048
     Dates: start: 20210907, end: 20210910
  44. SODIUM BICARBONATE [Concomitant]
     Active Substance: SODIUM BICARBONATE
     Indication: Mouth ulceration
     Dosage: 250 ML, GARGLE ONCE
     Route: 065
     Dates: start: 20210907, end: 20210907
  45. LONG CHAIN FAT EMULSION INJECTION (OO) [Concomitant]
     Indication: Nutritional supplementation
     Dosage: 250 ML, QD
     Route: 042
     Dates: start: 20210907, end: 20210908
  46. COMPOUND AMINO ACID INJECTION (14AA) [Concomitant]
     Indication: Nutritional supplementation
     Dosage: 250 ML, QD
     Route: 042
     Dates: start: 20210907, end: 20210908
  47. VITAMIN C [Concomitant]
     Active Substance: ASCORBIC ACID
     Indication: Supportive care
     Dosage: 2 G, ONE TIME DOSE
     Route: 042
     Dates: start: 20210908, end: 20210908
  48. VITAMIN B6 [Concomitant]
     Active Substance: PYRIDOXINE HYDROCHLORIDE
     Indication: Supportive care
     Dosage: 200 MG, ONE TIME DOSE
     Route: 042
     Dates: start: 20210908, end: 20210908
  49. UNSPECIFIED INGREDIENT [Concomitant]
     Active Substance: UNSPECIFIED INGREDIENT
     Indication: Nutritional supplementation
     Dosage: UNK
     Route: 065
     Dates: start: 20210909, end: 20210911
  50. UNSPECIFIED INGREDIENT [Concomitant]
     Active Substance: UNSPECIFIED INGREDIENT
     Dosage: UNK
     Dates: start: 20210911, end: 20210914
  51. ADEMETIONINE BUTANEDISULFONATE [Concomitant]
     Active Substance: ADEMETIONINE BUTANEDISULFONATE
     Indication: Blood bilirubin increased
     Dosage: 1 G, QD
     Route: 042
     Dates: start: 20210909, end: 20210914
  52. HUMAN RED BLOOD CELL [Concomitant]
     Active Substance: HUMAN RED BLOOD CELL
     Indication: Anaemia
     Dosage: 2.5 U ONE TIME DOSE
     Route: 042
     Dates: start: 20210910, end: 20210910
  53. VITAMIN K1 [Concomitant]
     Active Substance: PHYTONADIONE
     Indication: Vitamin K deficiency
     Dosage: 10 MG, QD
     Route: 030
     Dates: start: 20210910, end: 20210913
  54. FISH OIL [Concomitant]
     Active Substance: FISH OIL
     Indication: Nutritional supplementation
     Dosage: 10 G, ONE TIME DOSE
     Route: 042
     Dates: start: 20210914, end: 20210914
  55. OXYCODONE HYDROCHLORIDE [Concomitant]
     Active Substance: OXYCODONE HYDROCHLORIDE
     Indication: Pain
     Dosage: 10 MG, Q12H
     Dates: start: 20210825, end: 20210901
  56. PHOSPHOLIPID [Concomitant]
     Active Substance: PHOSPHOLIPID
     Indication: Alanine aminotransferase increased
     Dosage: 20 MG, QD
     Dates: start: 20210828, end: 20210830
  57. PHOSPHOLIPID [Concomitant]
     Active Substance: PHOSPHOLIPID
     Indication: Aspartate aminotransferase increased
  58. PHOSPHOLIPID [Concomitant]
     Active Substance: PHOSPHOLIPID
     Indication: Gamma-glutamyltransferase increased

REACTIONS (3)
  - Enterocolitis infectious [Recovered/Resolved]
  - Leukopenia [Recovered/Resolved]
  - Febrile neutropenia [Recovered/Resolved]

NARRATIVE: CASE EVENT DATE: 20210902
